FAERS Safety Report 16174560 (Version 1)
Quarter: 2019Q2

REPORT INFORMATION
  Report Type: Spontaneous
  Country: FR (occurrence: FR)
  Receive Date: 20190409
  Receipt Date: 20190409
  Transmission Date: 20190711
  Serious: Yes (Hospitalization)
  Sender: FDA-Public Use
  Company Number: FR-ABBVIE-18K-056-2265449-00

PATIENT
  Age: 2 Month
  Sex: Male

DRUGS (6)
  1. HUMIRA [Suspect]
     Active Substance: ADALIMUMAB
     Indication: CROHN^S DISEASE
     Dosage: DAY 1
     Route: 064
     Dates: start: 20170331, end: 20170331
  2. HUMIRA [Suspect]
     Active Substance: ADALIMUMAB
     Route: 063
     Dates: start: 2017, end: 20171003
  3. HUMIRA [Suspect]
     Active Substance: ADALIMUMAB
     Indication: CROHN^S DISEASE
     Dosage: DAY 15
     Route: 063
     Dates: start: 20170414, end: 20170414
  4. HUMIRA [Suspect]
     Active Substance: ADALIMUMAB
     Route: 063
     Dates: start: 20171003
  5. CORTANCYL [Suspect]
     Active Substance: PREDNISONE
     Indication: PRODUCT USED FOR UNKNOWN INDICATION
     Route: 064
     Dates: start: 201705, end: 20171003
  6. CORTANCYL [Suspect]
     Active Substance: PREDNISONE
     Route: 063
     Dates: start: 20171004, end: 20180131

REACTIONS (2)
  - Pyrexia [Recovered/Resolved]
  - Bronchiolitis [Recovered/Resolved]

NARRATIVE: CASE EVENT DATE: 20180101
